FAERS Safety Report 7248366-1 (Version None)
Quarter: 2011Q1

REPORT INFORMATION
  Report Type: 
  Country: None (occurrence: None)
  Receive Date: 20110127
  Receipt Date: 20110124
  Transmission Date: 20110831
  Serious: Yes (Other)
  Sender: FDA-Public Use
  Company Number: US-ABBOTT-11P-163-0700647-00

PATIENT
  Sex: Male
  Weight: 52.21 kg

DRUGS (1)
  1. HUMIRA [Suspect]
     Indication: CROHN'S DISEASE
     Route: 058
     Dates: start: 20100420

REACTIONS (5)
  - MUSCLE SPASMS [None]
  - CYST [None]
  - PAIN IN EXTREMITY [None]
  - PROCEDURAL PAIN [None]
  - OEDEMA PERIPHERAL [None]
